FAERS Safety Report 10231644 (Version 1)
Quarter: 2014Q2

REPORT INFORMATION
  Report Type: Spontaneous
  Country: US (occurrence: US)
  Receive Date: 20140611
  Receipt Date: 20140611
  Transmission Date: 20141212
  Serious: No
  Sender: FDA-Public Use
  Company Number: US-009507513-1406USA003192

PATIENT
  Sex: Female

DRUGS (1)
  1. PROVENTIL [Suspect]
     Dosage: UNK
     Dates: start: 20140604

REACTIONS (2)
  - Extra dose administered [Unknown]
  - Product quality issue [Unknown]
